FAERS Safety Report 9436524 (Version 1)
Quarter: 2013Q3

REPORT INFORMATION
  Report Type: Spontaneous
  Country: FR (occurrence: FR)
  Receive Date: 20130802
  Receipt Date: 20130802
  Transmission Date: 20140515
  Serious: No
  Sender: FDA-Public Use
  Company Number: FR-OPTIMER-20130043

PATIENT
  Age: 76 Year
  Sex: Female
  Weight: 63 kg

DRUGS (5)
  1. DIFICLIR [Suspect]
     Indication: PSEUDOMEMBRANOUS COLITIS
     Dosage: 200 MG, BID
     Route: 048
     Dates: start: 20130208
  2. LASILIX [Concomitant]
     Route: 048
  3. CRESTOR [Concomitant]
     Route: 048
  4. ALTEIS [Concomitant]
     Route: 048
  5. LEVOTHYROX [Concomitant]
     Route: 048

REACTIONS (4)
  - Headache [Recovered/Resolved]
  - Nausea [Unknown]
  - Vomiting [Recovered/Resolved]
  - Off label use [Unknown]
